FAERS Safety Report 4559739-X (Version None)
Quarter: 2005Q1

REPORT INFORMATION
  Report Type: 
  Country: None (occurrence: None)
  Receive Date: 20050114
  Receipt Date: 20041103
  Transmission Date: 20050727
  Serious: Yes (Hospitalization)
  Sender: FDA-Public Use
  Company Number: BDI-006637

PATIENT
  Age: 65 Year
  Sex: Female
  Weight: 66 kg

DRUGS (1)
  1. PROHANCE [Suspect]
     Dosage: 15 ML ONCE IV
     Route: 042
     Dates: start: 20041029, end: 20041029

REACTIONS (1)
  - SYNCOPE VASOVAGAL [None]
